FAERS Safety Report 18344435 (Version 1)
Quarter: 2020Q4

REPORT INFORMATION
  Report Type: Spontaneous
  Country: US (occurrence: US)
  Receive Date: 20201005
  Receipt Date: 20201005
  Transmission Date: 20210114
  Serious: No
  Sender: FDA-Public Use
  Company Number: None

PATIENT
  Age: 33 Year
  Sex: Male
  Weight: 61.69 kg

DRUGS (6)
  1. MELATONIN 6MG [Concomitant]
     Dates: start: 20200424
  2. OMEPRAZOLE 20MG DR [Concomitant]
  3. VARENICLINE 0.5MG [Concomitant]
     Dates: start: 20200410, end: 20200730
  4. CHOLECALCIFEROL 800 UNITS [Concomitant]
  5. CLONAZEPAM 1MG [Concomitant]
     Active Substance: CLONAZEPAM
  6. VRAYLAR [Suspect]
     Active Substance: CARIPRAZINE
     Indication: BIPOLAR DISORDER
     Route: 048
     Dates: start: 20200716, end: 20200731

REACTIONS (1)
  - Seizure [None]

NARRATIVE: CASE EVENT DATE: 20200728
